FAERS Safety Report 13599778 (Version 1)
Quarter: 2017Q2

REPORT INFORMATION
  Report Type: Report from Study
  Country: CA (occurrence: CA)
  Receive Date: 20170601
  Receipt Date: 20170601
  Transmission Date: 20170830
  Serious: Yes (Hospitalization, Other)
  Sender: FDA-Public Use
  Company Number: CA-BEH-2017080865

PATIENT
  Age: 57 Year
  Sex: Male

DRUGS (1)
  1. HIZENTRA [Suspect]
     Active Substance: HUMAN IMMUNOGLOBULIN G
     Indication: NEUROPATHY PERIPHERAL
     Dosage: 20 G, QW
     Route: 058
     Dates: end: 201610

REACTIONS (4)
  - Device related infection [Unknown]
  - Neuralgia [Recovering/Resolving]
  - Ill-defined disorder [Unknown]
  - Myelofibrosis [Unknown]

NARRATIVE: CASE EVENT DATE: 201610
